FAERS Safety Report 8658975 (Version 5)
Quarter: 2014Q1

REPORT INFORMATION
  Report Type: Report from Study
  Country: BR (occurrence: BR)
  Receive Date: 20120710
  Receipt Date: 20140331
  Transmission Date: 20141002
  Serious: Yes (Disabling, Other)
  Sender: FDA-Public Use
  Company Number: BR-ROCHE-748336

PATIENT
  Age: 42 Year
  Sex: Female
  Weight: 120 kg

DRUGS (20)
  1. MABTHERA [Suspect]
     Indication: RHEUMATOID ARTHRITIS
     Route: 042
     Dates: start: 20081201, end: 201104
  2. MABTHERA [Suspect]
     Route: 042
  3. MABTHERA [Suspect]
     Route: 042
  4. MABTHERA [Suspect]
     Route: 042
  5. MABTHERA [Suspect]
     Route: 042
     Dates: start: 200812, end: 201111
  6. FUROSEMIDE [Concomitant]
     Indication: POLYURIA
     Dosage: 1TAB/DAY
     Route: 065
  7. LOSARTAN [Concomitant]
     Indication: HYPERTENSION
     Dosage: 2 TAB/DAY
     Route: 065
  8. AMLODIPINE [Concomitant]
     Dosage: 1 TAB/NIGHT
     Route: 065
  9. ATENSINA [Concomitant]
     Indication: HYPERTENSION
     Route: 065
  10. ALPRAZOLAM [Concomitant]
     Indication: ANTIDEPRESSANT THERAPY
     Dosage: 1 TAB/AT NIGHT
     Route: 065
  11. FOLIC ACID [Concomitant]
     Dosage: 1 TAB/DAY
     Route: 065
  12. BUPROPION [Concomitant]
     Dosage: 2 TAB/NIGHT
     Route: 065
  13. CYCLOSPORIN [Concomitant]
     Route: 065
  14. CAPTOPRIL [Concomitant]
     Route: 065
  15. CITALOPRAM [Concomitant]
     Route: 065
  16. CITALOPRAM [Concomitant]
     Route: 065
  17. PANTOPRAZOL [Concomitant]
     Indication: PROPHYLAXIS
     Route: 065
  18. VITAMIN D3 [Concomitant]
     Route: 065
  19. CLOXAZOLAM [Concomitant]
     Route: 065
  20. HYDROXYCHLOROQUINE [Concomitant]
     Indication: RHEUMATOID ARTHRITIS

REACTIONS (26)
  - Blood immunoglobulin G increased [Not Recovered/Not Resolved]
  - Red blood cell sedimentation rate increased [Recovered/Resolved]
  - Pneumonia [Recovered/Resolved]
  - Intervertebral disc protrusion [Not Recovered/Not Resolved]
  - Agitation [Recovered/Resolved]
  - Pain [Unknown]
  - Skin discolouration [Unknown]
  - Hepatic pain [Unknown]
  - Liver disorder [Unknown]
  - Feeling of despair [Recovering/Resolving]
  - Swelling [Unknown]
  - Disease progression [Unknown]
  - Pain [Recovering/Resolving]
  - Alopecia [Not Recovered/Not Resolved]
  - White blood cell count decreased [Not Recovered/Not Resolved]
  - Anaemia [Recovering/Resolving]
  - C-reactive protein increased [Not Recovered/Not Resolved]
  - Hypertension [Not Recovered/Not Resolved]
  - Somnolence [Unknown]
  - Agitation [Unknown]
  - Pain in extremity [Not Recovered/Not Resolved]
  - Amnesia [Not Recovered/Not Resolved]
  - Hyperhidrosis [Not Recovered/Not Resolved]
  - Drug ineffective [Unknown]
  - Pain in extremity [Not Recovered/Not Resolved]
  - Arthropathy [Not Recovered/Not Resolved]
